FAERS Safety Report 21450043 (Version 1)
Quarter: 2022Q4

REPORT INFORMATION
  Report Type: Spontaneous
  Country: US (occurrence: None)
  Receive Date: 20221012
  Receipt Date: 20221012
  Transmission Date: 20230113
  Serious: Yes (Hospitalization)
  Sender: FDA-Public Use
  Company Number: None

PATIENT
  Sex: Female

DRUGS (3)
  1. REBIF REBIDOSE [Suspect]
     Active Substance: INTERFERON BETA-1A
     Indication: Multiple sclerosis
     Dosage: 44 MCG/0.4ML SUBCUTANEOUS??INJECT 44 MCG UNDER THE SKIN (SUBCUTANEOUS INJECTION) THREE TIMES PER WEE
     Route: 058
     Dates: start: 20150715
  2. REBIF REBIDOSE [Suspect]
     Active Substance: INTERFERON BETA-1A
     Dosage: FREQUENCY : 3 TIMES A WEEK;?
     Route: 058
  3. NAPROSYN [Concomitant]
     Active Substance: NAPROXEN

REACTIONS (1)
  - Hospitalisation [None]
